FAERS Safety Report 9239852 (Version 1)
Quarter: 2013Q2

REPORT INFORMATION
  Report Type: Spontaneous
  Country: US (occurrence: US)
  Receive Date: 20130418
  Receipt Date: 20130418
  Transmission Date: 20140414
  Serious: Yes (Other)
  Sender: FDA-Public Use
  Company Number: US-TEVA-398077USA

PATIENT
  Age: 28 Year
  Sex: Female
  Weight: 104.42 kg

DRUGS (2)
  1. PLAN B ONE-STEP [Suspect]
     Indication: POST COITAL CONTRACEPTION
     Dosage: 1.5 MILLIGRAM DAILY;
     Route: 048
     Dates: start: 20130222, end: 20130222
  2. AMOXICILLIN [Suspect]
     Indication: UPPER RESPIRATORY TRACT INFECTION
     Dosage: 1000 MILLIGRAM DAILY;
     Route: 048
     Dates: start: 201302, end: 20130301

REACTIONS (4)
  - Pregnancy after post coital contraception [Unknown]
  - Nipple pain [Not Recovered/Not Resolved]
  - Menstruation irregular [Recovered/Resolved]
  - Drug ineffective [Unknown]
